FAERS Safety Report 13911759 (Version 1)
Quarter: 2017Q3

REPORT INFORMATION
  Report Type: Spontaneous
  Country: US (occurrence: US)
  Receive Date: 20170828
  Receipt Date: 20170828
  Transmission Date: 20171127
  Serious: No
  Sender: FDA-Public Use
  Company Number: US-ROCHE-1011951

PATIENT

DRUGS (1)
  1. NUTROPIN AQ [Suspect]
     Active Substance: SOMATROPIN
     Indication: PRODUCT USED FOR UNKNOWN INDICATION
     Route: 058
     Dates: start: 20111005

REACTIONS (3)
  - Injection site haemorrhage [Recovered/Resolved with Sequelae]
  - Rash [Not Recovered/Not Resolved]
  - Growth of eyelashes [Not Recovered/Not Resolved]
